FAERS Safety Report 12293423 (Version 1)
Quarter: 2016Q2

REPORT INFORMATION
  Report Type: Spontaneous
  Country: CN (occurrence: CN)
  Receive Date: 20160421
  Receipt Date: 20160421
  Transmission Date: 20160815
  Serious: Yes (Other)
  Sender: FDA-Public Use
  Company Number: CN-BAUSCH-BL-2016-009166

PATIENT
  Age: 56 Year
  Sex: Female

DRUGS (22)
  1. VINCRISTINE [Suspect]
     Active Substance: VINCRISTINE
     Indication: DISEASE PROGRESSION
  2. EPIRUBICIN [Suspect]
     Active Substance: EPIRUBICIN
     Indication: NON-HODGKIN^S LYMPHOMA STAGE III
     Route: 042
  3. SALINE [Concomitant]
     Active Substance: SODIUM CHLORIDE
     Indication: CENTRAL NERVOUS SYSTEM LEUKAEMIA
  4. DEXAMETHASONE. [Suspect]
     Active Substance: DEXAMETHASONE
     Indication: CENTRAL NERVOUS SYSTEM LEUKAEMIA
     Route: 065
  5. PIRARUBICIN [Suspect]
     Active Substance: PIRARUBICIN
     Indication: LYMPHOMA
     Route: 042
  6. PREDNISOLONE. [Suspect]
     Active Substance: PREDNISOLONE
     Indication: NON-HODGKIN^S LYMPHOMA STAGE III
     Dosage: 100 MG PO QD D1-5 Q21D
     Route: 048
  7. VINCRISTINE [Suspect]
     Active Substance: VINCRISTINE
     Indication: NON-HODGKIN^S LYMPHOMA STAGE III
     Route: 042
  8. VINCRISTINE [Suspect]
     Active Substance: VINCRISTINE
     Indication: B-CELL LYMPHOMA STAGE II
  9. PREDNISOLONE. [Suspect]
     Active Substance: PREDNISOLONE
     Indication: B-CELL LYMPHOMA STAGE II
     Dosage: 60MG PO QD
     Route: 048
  10. PREDNISOLONE. [Suspect]
     Active Substance: PREDNISOLONE
     Indication: DISEASE PROGRESSION
  11. METHOTREXATE [Suspect]
     Active Substance: METHOTREXATE
     Indication: PRODUCT USED FOR UNKNOWN INDICATION
     Route: 037
  12. LASPAR [Concomitant]
     Indication: LYMPHOMA
  13. PREDNISOLONE. [Suspect]
     Active Substance: PREDNISOLONE
     Indication: LYMPHOMA
     Dosage: 60MG PO QD D1-14; Q21D
     Route: 048
  14. CYCLOPHOSPHAMIDE. [Suspect]
     Active Substance: CYCLOPHOSPHAMIDE
     Indication: NON-HODGKIN^S LYMPHOMA STAGE III
     Route: 042
  15. CYCLOPHOSPHAMIDE. [Suspect]
     Active Substance: CYCLOPHOSPHAMIDE
     Indication: LYMPHOMA
     Route: 042
  16. CYCLOPHOSPHAMIDE. [Suspect]
     Active Substance: CYCLOPHOSPHAMIDE
     Indication: DISEASE PROGRESSION
  17. LASPAR [Concomitant]
     Indication: B-CELL LYMPHOMA STAGE II
     Dosage: 10000U QOD X 5;Q21D
     Route: 042
  18. CYCLOPHOSPHAMIDE. [Suspect]
     Active Substance: CYCLOPHOSPHAMIDE
     Indication: B-CELL LYMPHOMA STAGE II
     Route: 042
  19. VINCRISTINE [Suspect]
     Active Substance: VINCRISTINE
     Indication: LYMPHOMA
  20. PIRARUBICIN [Suspect]
     Active Substance: PIRARUBICIN
     Indication: B-CELL LYMPHOMA STAGE II
     Route: 042
  21. PIRARUBICIN [Suspect]
     Active Substance: PIRARUBICIN
     Indication: DISEASE PROGRESSION
  22. CYTARABINE. [Suspect]
     Active Substance: CYTARABINE
     Indication: DISEASE PROGRESSION
     Route: 042

REACTIONS (4)
  - Decreased appetite [Unknown]
  - Bone marrow failure [Unknown]
  - Fatigue [Unknown]
  - Asthenia [Unknown]
